FAERS Safety Report 9553792 (Version 1)
Quarter: 2013Q3

REPORT INFORMATION
  Report Type: Spontaneous
  Country: GB (occurrence: GB)
  Receive Date: 20130925
  Receipt Date: 20130925
  Transmission Date: 20140515
  Serious: Yes (Other)
  Sender: FDA-Public Use
  Company Number: GB-PFIZER INC-2013270959

PATIENT
  Age: 49 Year
  Sex: Male
  Weight: 76 kg

DRUGS (7)
  1. IBUPROFEN [Suspect]
     Dosage: UNK
     Dates: start: 20130906
  2. BUDESONIDE [Concomitant]
     Dosage: UNK
     Dates: start: 20130621, end: 20130622
  3. BUDESONIDE [Concomitant]
     Dates: start: 20130717, end: 20130718
  4. BUDESONIDE [Concomitant]
     Dates: start: 20130813, end: 20130814
  5. BUDESONIDE [Concomitant]
     Dates: start: 20130904, end: 20130905
  6. SALBUTAMOL [Concomitant]
     Dosage: UNK
     Dates: start: 20130906
  7. LOPERAMIDE [Concomitant]
     Dosage: UNK
     Dates: start: 20130906

REACTIONS (2)
  - Dyspnoea [Unknown]
  - Asthma [Unknown]
